FAERS Safety Report 5704994-3 (Version None)
Quarter: 2008Q2

REPORT INFORMATION
  Report Type: 
  Country: None (occurrence: None)
  Receive Date: 20080414
  Receipt Date: 20080411
  Transmission Date: 20081010
  Serious: Yes (Other)
  Sender: FDA-Public Use
  Company Number: CH-BOEHRINGER INGELHEIM GMBH, GERMANY-2008-DE-01263GD

PATIENT
  Age: 17 Year
  Sex: Male

DRUGS (7)
  1. CLONIDINE HCL [Suspect]
     Indication: POSTOPERATIVE ANALGESIA
     Dosage: 0.6 MCG/ML AT A BASAL RATE OF 0.2 ML/KG/H, ADDITIONAL PCEA DOSES OF 0.1 ML/KG/H WITH LOCKOUT TIME OF
     Route: 008
  2. BUPIVACAINE [Suspect]
     Indication: POSTOPERATIVE ANALGESIA
     Dosage: 0.0625 % AT A BASAL RATE OF 0.2 ML/KG/H, ADDITIONAL DOSES OF 0.1 ML/KG/H WITH LOCKOUT TIME OF 15 MIN
     Route: 008
  3. BUPIVACAINE [Suspect]
     Dosage: 0.15 ML/KG, MAX. 2.5 ML
     Route: 008
  4. BUPIVACAINE [Suspect]
     Dosage: 0.125 % 2 MG/KG
     Route: 008
  5. FENTANYL [Suspect]
     Indication: POSTOPERATIVE ANALGESIA
     Dosage: 1 MCG/ML AT A BASAL RATE OF 0.2 ML/KG/H, ADDITIONAL DOSES OF 0.1 ML/KG/H WITH LOCKOUT TIME OF 15 MIN
     Route: 008
  6. PARACETAMOL [Concomitant]
     Indication: POSTOPERATIVE ANALGESIA
     Dosage: 60 MG/KG
     Route: 042
  7. CEFUROXIME [Concomitant]
     Indication: ANTIBIOTIC PROPHYLAXIS
     Dosage: 75 MG/KG
     Route: 042

REACTIONS (1)
  - CONVULSION [None]
